FAERS Safety Report 14669376 (Version 2)
Quarter: 2018Q3

REPORT INFORMATION
  Report Type: Spontaneous
  Country: ES (occurrence: ES)
  Receive Date: 20180322
  Receipt Date: 20180724
  Transmission Date: 20181010
  Serious: Yes (Hospitalization)
  Sender: FDA-Public Use
  Company Number: ES-TEVA-2018-ES-870405

PATIENT
  Age: 86 Year
  Sex: Female

DRUGS (4)
  1. DILTIAZEM HIDROCLORURO (3735CH) [Interacting]
     Active Substance: DILTIAZEM HYDROCHLORIDE
     Indication: HYPERTENSION
     Route: 048
  2. CARVEDILOL (2431A) [Concomitant]
     Active Substance: CARVEDILOL
     Indication: HYPERTENSION
     Route: 048
  3. SIMVASTATIN. [Suspect]
     Active Substance: SIMVASTATIN
     Indication: DYSLIPIDAEMIA
     Route: 048
  4. TRAMADOL PARACETAMOL FARMA TARBIS 37,5 MG/325 MG TABLETS EFG , 60 TABL [Concomitant]
     Indication: PAIN
     Route: 048

REACTIONS (3)
  - Hypertransaminasaemia [Recovered/Resolved]
  - Rhabdomyolysis [Recovered/Resolved]
  - Drug interaction [Unknown]

NARRATIVE: CASE EVENT DATE: 20170910
